FAERS Safety Report 6981904-2 (Version None)
Quarter: 2010Q3

REPORT INFORMATION
  Report Type: 
  Country: None (occurrence: None)
  Receive Date: 20100914
  Receipt Date: 20091019
  Transmission Date: 20110219
  Serious: Yes (Other)
  Sender: FDA-Public Use
  Company Number: US-PFIZER INC-2009286555

PATIENT
  Sex: Male
  Weight: 104.31 kg

DRUGS (3)
  1. LYRICA [Suspect]
     Indication: NERVE INJURY
     Dosage: 225 MG, 3X/DAY
     Route: 048
     Dates: start: 20090821
  2. NAPROXEN SODIUM [Concomitant]
     Dosage: 500 MG, 2X/DAY
  3. AVALIDE [Concomitant]
     Dosage: 150/12.5MG

REACTIONS (7)
  - CONFUSIONAL STATE [None]
  - DIZZINESS [None]
  - FATIGUE [None]
  - HOSTILITY [None]
  - IRRITABILITY [None]
  - SOMNOLENCE [None]
  - WEIGHT INCREASED [None]
